FAERS Safety Report 7731512-0 (Version None)
Quarter: 2011Q3

REPORT INFORMATION
  Report Type: 
  Country: None (occurrence: None)
  Receive Date: 20110906
  Receipt Date: 20110608
  Transmission Date: 20111222
  Serious: No
  Sender: FDA-Public Use
  Company Number: US-AMGEN-USASP2011029584

PATIENT
  Age: 60 Year
  Sex: Female

DRUGS (23)
  1. KLOR-CON/EF [Concomitant]
  2. CYMBALTA [Concomitant]
  3. NEXIUM [Concomitant]
  4. CONCERTA [Concomitant]
  5. VITAMIN B6 [Concomitant]
  6. XANAX [Concomitant]
  7. LORTAB [Concomitant]
  8. PROLIA [Suspect]
     Indication: OSTEOPOROSIS
     Dosage: 60 MG, Q6MO
     Dates: start: 20110601
  9. VITAMIN C                          /00008001/ [Concomitant]
  10. ASPIRIN [Concomitant]
  11. NUVIGIL [Concomitant]
  12. ABILIFY [Concomitant]
  13. SOMA [Concomitant]
  14. VALTREX [Concomitant]
  15. VITAMIN B12                        /00056201/ [Concomitant]
  16. ALLEGRA D 24 HOUR [Concomitant]
  17. MULTIVITAMIN                       /00097801/ [Concomitant]
  18. RELPAX [Concomitant]
  19. HYDROCHLOROTHIAZIDE [Concomitant]
  20. TOVIAZ [Concomitant]
  21. TRAZODONE HCL [Concomitant]
  22. CALCIUM WITH VITAMIN D             /00944201/ [Concomitant]
  23. SIMVASTATIN [Concomitant]

REACTIONS (1)
  - MUSCLE SPASMS [None]
